FAERS Safety Report 18984537 (Version 1)
Quarter: 2021Q1

REPORT INFORMATION
  Report Type: Spontaneous
  Country: CN (occurrence: CN)
  Receive Date: 20210308
  Receipt Date: 20210308
  Transmission Date: 20210420
  Serious: Yes (Other)
  Sender: FDA-Public Use
  Company Number: CN-BAUSCH-BL-2021-007047

PATIENT
  Age: 46 Year
  Sex: Male

DRUGS (2)
  1. VERTEPORFIN [Suspect]
     Active Substance: VERTEPORFIN
     Indication: CHORIORETINOPATHY
     Dosage: ALONG WITH HALF?DOSE PDT
     Route: 042
  2. VERTEPORFIN [Suspect]
     Active Substance: VERTEPORFIN
     Indication: PRODUCT USE IN UNAPPROVED INDICATION

REACTIONS (4)
  - Product use in unapproved indication [Recovered/Resolved]
  - Retinal haemorrhage [Recovered/Resolved]
  - Detachment of retinal pigment epithelium [Unknown]
  - Choroidal neovascularisation [Recovered/Resolved]
